FAERS Safety Report 10136868 (Version 1)
Quarter: 2014Q2

REPORT INFORMATION
  Report Type: Spontaneous
  Country: IN (occurrence: IN)
  Receive Date: 20140429
  Receipt Date: 20140429
  Transmission Date: 20141212
  Serious: Yes (Death)
  Sender: FDA-Public Use
  Company Number: IN-ASTELLAS-2014JP003371

PATIENT
  Sex: 0

DRUGS (2)
  1. MICAFUNGIN [Suspect]
     Indication: SYSTEMIC CANDIDA
     Route: 065
  2. MICAFUNGIN [Suspect]

REACTIONS (1)
  - Death [Fatal]
